FAERS Safety Report 9270653 (Version 3)
Quarter: 2013Q2

REPORT INFORMATION
  Report Type: Spontaneous
  Country: US (occurrence: US)
  Receive Date: 20130504
  Receipt Date: 20130610
  Transmission Date: 20140414
  Serious: Yes (Hospitalization, Disabling, Other)
  Sender: FDA-Public Use
  Company Number: US-009507513-1305USA000869

PATIENT
  Sex: Female
  Weight: 73.92 kg

DRUGS (2)
  1. JANUVIA [Suspect]
     Indication: TYPE 2 DIABETES MELLITUS
     Dosage: 100 MG, QD
     Route: 048
     Dates: start: 20110921, end: 20130411
  2. HOMEOPATHIC MEDICATIONS (UNSPECIFIED) [Concomitant]

REACTIONS (5)
  - Pancreatic carcinoma [Unknown]
  - Cholangiocarcinoma [Not Recovered/Not Resolved]
  - Jaundice [Not Recovered/Not Resolved]
  - Cholecystectomy [Not Recovered/Not Resolved]
  - Pain [Not Recovered/Not Resolved]
